FAERS Safety Report 17190381 (Version 1)
Quarter: 2019Q4

REPORT INFORMATION
  Report Type: Spontaneous
  Country: FR (occurrence: FR)
  Receive Date: 20191223
  Receipt Date: 20191223
  Transmission Date: 20200122
  Serious: Yes (Death)
  Sender: FDA-Public Use
  Company Number: FR-DRREDDYS-GER/FRA/19/0117498

PATIENT
  Age: 51 Year
  Sex: Male
  Weight: 73 kg

DRUGS (1)
  1. DAPTOMYCINE REDDY PHARMA, POUDRE POUR SOLUTION INJECTABLE/POUR PERFUSI [Suspect]
     Active Substance: DAPTOMYCIN
     Indication: LYMPHANGITIS
     Route: 041
     Dates: start: 20190918, end: 20190925

REACTIONS (1)
  - Liver disorder [Fatal]

NARRATIVE: CASE EVENT DATE: 20190918
